FAERS Safety Report 4528549-1 (Version None)
Quarter: 2004Q4

REPORT INFORMATION
  Report Type: 
  Country: None (occurrence: None)
  Receive Date: 20041216
  Receipt Date: 20041206
  Transmission Date: 20050328
  Serious: Yes (Hospitalization, Other)
  Sender: FDA-Public Use
  Company Number: AU-ABBOTT-04P-008-0282519-00

PATIENT
  Sex: Male

DRUGS (2)
  1. VALPROATE SODIUM [Suspect]
     Indication: CATATONIA
  2. LITHIUM [Concomitant]
     Indication: AFFECTIVE DISORDER

REACTIONS (3)
  - DELUSION [None]
  - HALLUCINATION [None]
  - MENTAL DISORDER [None]
